FAERS Safety Report 11758028 (Version 3)
Quarter: 2016Q1

REPORT INFORMATION
  Report Type: Spontaneous
  Country: US (occurrence: US)
  Receive Date: 20151120
  Receipt Date: 20160328
  Transmission Date: 20160525
  Serious: Yes (Death)
  Sender: FDA-Public Use
  Company Number: US-JAZZ-2013-138

PATIENT
  Sex: Male

DRUGS (7)
  1. FAZACLO [Suspect]
     Active Substance: CLOZAPINE
     Dosage: 100-150 MG, QD
     Route: 048
     Dates: start: 20130408, end: 20130415
  2. LOPRESSOR [Concomitant]
     Active Substance: METOPROLOL TARTRATE
  3. VITAMIN D3 [Concomitant]
     Active Substance: CHOLECALCIFEROL
  4. PROTONIX [Concomitant]
     Active Substance: PANTOPRAZOLE SODIUM
  5. DIGOXIN. [Concomitant]
     Active Substance: DIGOXIN
  6. MULTIVITAMIN [Concomitant]
     Active Substance: VITAMINS
  7. PRIMIDONE. [Concomitant]
     Active Substance: PRIMIDONE

REACTIONS (1)
  - Pneumonia aspiration [Fatal]
